FAERS Safety Report 11455533 (Version 2)
Quarter: 2015Q3

REPORT INFORMATION
  Report Type: Spontaneous
  Country: US (occurrence: US)
  Receive Date: 20150903
  Receipt Date: 20150908
  Transmission Date: 20151125
  Serious: No
  Sender: FDA-Public Use
  Company Number: US-BRISTOL-MYERS SQUIBB COMPANY-BMS-2015-051700

PATIENT
  Sex: Female

DRUGS (3)
  1. KARIVA [Suspect]
     Active Substance: DESOGESTREL\ETHINYL ESTRADIOL
     Indication: PRODUCT USED FOR UNKNOWN INDICATION
     Route: 065
  2. KENALOG-40 [Suspect]
     Active Substance: TRIAMCINOLONE ACETONIDE
     Indication: SINUSITIS
     Dosage: 40 MG, UNK
     Route: 065
     Dates: start: 20141211, end: 20141211
  3. CIPRO                              /00697201/ [Suspect]
     Active Substance: CIPROFLOXACIN
     Indication: SINUSITIS
     Dosage: 500 UNK, UNK
     Route: 065

REACTIONS (2)
  - Injection site atrophy [Unknown]
  - Maternal exposure before pregnancy [Unknown]
